FAERS Safety Report 24934999 (Version 2)
Quarter: 2025Q1

REPORT INFORMATION
  Report Type: Spontaneous
  Country: TR (occurrence: TR)
  Receive Date: 20250206
  Receipt Date: 20250220
  Transmission Date: 20250409
  Serious: No
  Sender: NOVARTIS
  Company Number: TR-002147023-NVSC2025TR019909

PATIENT
  Age: 66 Year
  Sex: Female

DRUGS (2)
  1. CARBAMAZEPINE [Suspect]
     Active Substance: CARBAMAZEPINE
     Indication: Seizure
     Dosage: 400 MG, BID (FOR 30 YEARS)
     Route: 065
  2. CARBAMAZEPINE [Suspect]
     Active Substance: CARBAMAZEPINE
     Route: 065

REACTIONS (1)
  - Anticonvulsant drug level above therapeutic [Recovering/Resolving]
